FAERS Safety Report 5638239-X (Version None)
Quarter: 2008Q1

REPORT INFORMATION
  Report Type: 
  Country: None (occurrence: None)
  Receive Date: 20080226
  Receipt Date: 20080212
  Transmission Date: 20080703
  Serious: Yes (Other)
  Sender: FDA-Public Use
  Company Number: US-BAYER-200810636BCC

PATIENT
  Age: 81 Year
  Sex: Male
  Weight: 89 kg

DRUGS (7)
  1. ASPIRIN [Suspect]
     Indication: ISCHAEMIC HEART DISEASE PROPHYLAXIS
     Dosage: TOTAL DAILY DOSE: 81 MG  UNIT DOSE: 81 MG
     Route: 048
  2. ASPIRIN [Suspect]
     Dosage: TOTAL DAILY DOSE: 81  MG  UNIT DOSE: 81 MG
     Route: 048
  3. ASPIRIN [Suspect]
  4. DUITIZAN [Concomitant]
  5. TERAZOSIN [Concomitant]
  6. COUMADIN [Concomitant]
  7. LIPITOR [Concomitant]

REACTIONS (1)
  - BLOOD URINE PRESENT [None]
